FAERS Safety Report 10085077 (Version 1)
Quarter: 2014Q2

REPORT INFORMATION
  Report Type: Spontaneous
  Country: US (occurrence: None)
  Receive Date: 20140409
  Receipt Date: 20140409
  Transmission Date: 20141212
  Serious: Yes (Hospitalization)
  Sender: FDA-Public Use
  Company Number: 1216110

PATIENT
  Sex: 0

DRUGS (2)
  1. VANCOMYCIN HYDROCHLORIDE, USO 10 GRAM VIAL (PHARMACY BULK PACKAGE) (VANCOMYCIN HYDROCHLORIDE) [Suspect]
     Indication: PRODUCT USED FOR UNKNOWN INDICATION
  2. VANCOMYCIN HYDROCHLORIDE (STERILE), USO, 5GM PHARMACY B. PKG. (VANCOMYCIN HYDROCHLORIDE) [Suspect]
     Indication: PRODUCT USED FOR UNKNOWN INDICATION

REACTIONS (1)
  - Renal failure [None]
